FAERS Safety Report 9665790 (Version 2)
Quarter: 2013Q4

REPORT INFORMATION
  Report Type: Spontaneous
  Country: AU (occurrence: AU)
  Receive Date: 20131104
  Receipt Date: 20131104
  Transmission Date: 20140711
  Serious: Yes (Disabling)
  Sender: FDA-Public Use
  Company Number: PHHY2013AU115356

PATIENT
  Age: 44 Year
  Sex: Female

DRUGS (2)
  1. AFINITOR [Suspect]
     Indication: BREAST CANCER METASTATIC
     Dosage: 10 MG, DAILY
     Route: 048
     Dates: start: 20130827
  2. AFINITOR [Suspect]
     Dosage: 2.5 MG, DAILY
     Route: 048

REACTIONS (2)
  - Skin reaction [Unknown]
  - Mucosal inflammation [Unknown]
